FAERS Safety Report 7118804-3 (Version None)
Quarter: 2010Q4

REPORT INFORMATION
  Report Type: 
  Country: None (occurrence: None)
  Receive Date: 20101123
  Receipt Date: 20101007
  Transmission Date: 20110411
  Serious: No
  Sender: FDA-Public Use
  Company Number: US-KINGPHARMUSA00001-K201001256

PATIENT
  Age: 77 Year
  Sex: Female
  Weight: 63.946 kg

DRUGS (10)
  1. FLECTOR [Suspect]
     Indication: TENDON PAIN
     Dosage: 1/6 PATCH, EVERY 12 HOURS
     Route: 061
     Dates: start: 20100916, end: 20101006
  2. NAPRELAN [Suspect]
     Indication: TENDON PAIN
     Dosage: 500 MG, BID
     Route: 048
     Dates: start: 20100916, end: 20101006
  3. MEVACOR [Concomitant]
     Indication: BLOOD CHOLESTEROL INCREASED
     Dosage: UNK
     Route: 048
  4. LOVAZA [Concomitant]
     Indication: BLOOD CHOLESTEROL INCREASED
     Dosage: UNK
     Route: 048
  5. DIOVAN [Concomitant]
     Indication: HYPERTENSION
     Dosage: UNK
     Route: 048
  6. TEKTURNA [Concomitant]
     Indication: HYPERTENSION
     Dosage: UNK
     Route: 048
  7. AMLODIPINE BESYLATE [Concomitant]
     Dosage: 5 MG, QHS
     Route: 048
  8. ADVAIR DISKUS 100/50 [Concomitant]
     Indication: HYPERSENSITIVITY
     Dosage: UNK
  9. NASAL PREPARATIONS [Concomitant]
     Indication: HYPERSENSITIVITY
     Dosage: UNK
     Route: 045
  10. ALLERGY [Concomitant]
     Indication: HYPERSENSITIVITY
     Dosage: UNK
     Route: 030

REACTIONS (3)
  - BLOOD CREATININE INCREASED [None]
  - EYE DISCHARGE [None]
  - EYE PRURITUS [None]
